FAERS Safety Report 6434913-6 (Version None)
Quarter: 2009Q4

REPORT INFORMATION
  Report Type: 
  Country: None (occurrence: None)
  Receive Date: 20091110
  Receipt Date: 20091103
  Transmission Date: 20100525
  Serious: Yes (Hospitalization)
  Sender: FDA-Public Use
  Company Number: CN-BRISTOL-MYERS SQUIBB COMPANY-14846448

PATIENT
  Age: 67 Year
  Sex: Female

DRUGS (1)
  1. ERBITUX [Suspect]
     Indication: GASTROINTESTINAL NEOPLASM
     Dosage: 8 WEEKS FOR EACH CYCLE
     Route: 042
     Dates: start: 20080301

REACTIONS (3)
  - DIPLOPIA [None]
  - GAIT DISTURBANCE [None]
  - LEUKODYSTROPHY [None]
